FAERS Safety Report 10402501 (Version 6)
Quarter: 2016Q1

REPORT INFORMATION
  Report Type: Report from Study
  Country: US (occurrence: US)
  Receive Date: 20140822
  Receipt Date: 20160212
  Transmission Date: 20160525
  Serious: Yes (Hospitalization, Other)
  Sender: FDA-Public Use
  Company Number: US-SANOFI-AVENTIS-2013SA029304

PATIENT
  Age: 50 Year
  Sex: Male

DRUGS (1)
  1. AUBAGIO [Suspect]
     Active Substance: TERIFLUNOMIDE
     Indication: MULTIPLE SCLEROSIS
     Route: 048
     Dates: start: 20130206

REACTIONS (10)
  - Dry mouth [Unknown]
  - Unevaluable event [Unknown]
  - Paraesthesia [Unknown]
  - Weight decreased [Unknown]
  - Eating disorder [Unknown]
  - Erythema [Unknown]
  - Intervertebral disc protrusion [Unknown]
  - White blood cell count increased [Unknown]
  - Liver function test abnormal [Unknown]
  - Hypoaesthesia [Unknown]

NARRATIVE: CASE EVENT DATE: 201303
